FAERS Safety Report 11876770 (Version 1)
Quarter: 2015Q4

REPORT INFORMATION
  Report Type: Spontaneous
  Country: US (occurrence: US)
  Receive Date: 20151229
  Receipt Date: 20151229
  Transmission Date: 20160305
  Serious: Yes (Other)
  Sender: FDA-Public Use
  Company Number: US-PFIZER INC-2015468170

PATIENT
  Age: 61 Year
  Sex: Female
  Weight: 79.83 kg

DRUGS (8)
  1. VENLAFAXINE HYDROCHLORIDE ER [Suspect]
     Active Substance: VENLAFAXINE HYDROCHLORIDE
     Dosage: DOUBLE THE AMOUNT (150 MG, DAILY)
  2. DIOVAN [Concomitant]
     Active Substance: VALSARTAN
     Indication: HYPERTENSION
     Dosage: 320 MG ONCE A DAY THREE TIMES A WEEK
  3. EFFEXOR XR [Suspect]
     Active Substance: VENLAFAXINE HYDROCHLORIDE
     Indication: DEPRESSION
     Dosage: 75 MG
  4. VENLAFAXINE HYDROCHLORIDE ER [Suspect]
     Active Substance: VENLAFAXINE HYDROCHLORIDE
     Indication: DEPRESSION
     Dosage: 75 MG, ONCE A DAY
  5. GLIMEPIRIDE. [Concomitant]
     Active Substance: GLIMEPIRIDE
     Indication: DIABETES MELLITUS
     Dosage: 1 MG ONCE A DAY
  6. METFORMIN [Concomitant]
     Active Substance: METFORMIN HYDROCHLORIDE
     Indication: DIABETES MELLITUS
     Dosage: 500 MG BID
  7. MELOXICAM. [Concomitant]
     Active Substance: MELOXICAM
     Indication: ARTHRITIS
     Dosage: 7.5 MG ONCE A DAY 3 TIMES A WEEK
  8. PRAVASTATIN [Concomitant]
     Active Substance: PRAVASTATIN\PRAVASTATIN SODIUM
     Indication: BLOOD CHOLESTEROL ABNORMAL
     Dosage: 20 MG Q.H.S (NIGHT TIME) ONCE A DAY

REACTIONS (5)
  - Intentional product use issue [Unknown]
  - Glycosylated haemoglobin increased [Unknown]
  - General physical condition abnormal [Unknown]
  - Blood cholesterol increased [Unknown]
  - Drug ineffective [Unknown]

NARRATIVE: CASE EVENT DATE: 201505
